FAERS Safety Report 8396226-5 (Version None)
Quarter: 2012Q2

REPORT INFORMATION
  Report Type: 
  Country: None (occurrence: None)
  Receive Date: 20120530
  Receipt Date: 20120524
  Transmission Date: 20120825
  Serious: Yes (Hospitalization, Other)
  Sender: FDA-Public Use
  Company Number: PHHY2012BR045255

PATIENT
  Sex: Male

DRUGS (1)
  1. EXFORGE [Suspect]
     Dosage: 1 DF, (VALS 320 MG , AMLO 10 MG) A DAY

REACTIONS (3)
  - VENOUS OCCLUSION [None]
  - HYPOTENSION [None]
  - HYPERTENSION [None]
